FAERS Safety Report 8986515 (Version 2)
Quarter: 2013Q1

REPORT INFORMATION
  Report Type: Spontaneous
  Country: FR (occurrence: FR)
  Receive Date: 20121226
  Receipt Date: 20130118
  Transmission Date: 20140127
  Serious: Yes (Hospitalization)
  Sender: FDA-Public Use
  Company Number: PHHY2012FR117945

PATIENT
  Age: 78 Year
  Sex: Male

DRUGS (3)
  1. RASILEZ [Suspect]
     Route: 048
     Dates: start: 201010, end: 201201
  2. BIPRETERAX [Suspect]
     Dosage: UNK
     Route: 048
     Dates: end: 201206
  3. ATACAND [Suspect]
     Dosage: 32 MG, QD
     Route: 048

REACTIONS (3)
  - Eczema [Recovered/Resolved]
  - Xerosis [Unknown]
  - Perivascular dermatitis [Recovering/Resolving]
